FAERS Safety Report 8388958-X (Version None)
Quarter: 2012Q2

REPORT INFORMATION
  Report Type: 
  Country: None (occurrence: None)
  Receive Date: 20120528
  Receipt Date: 20120521
  Transmission Date: 20120825
  Serious: Yes (Hospitalization, Other)
  Sender: FDA-Public Use
  Company Number: US-AMGEN-USASP2012030145

PATIENT
  Age: 68 Year
  Sex: Male
  Weight: 138.78 kg

DRUGS (16)
  1. ASMANEX TWISTHALER [Concomitant]
     Dosage: UNK UNK, QD
     Route: 045
  2. CRESTOR [Concomitant]
     Dosage: UNK UNK, QD
     Route: 048
  3. NITROGLYCERIN [Concomitant]
     Dosage: UNK UNK, PRN
     Route: 060
  4. CHROMAGEN FORTE [Concomitant]
     Dosage: UNK UNK, QD
     Route: 048
  5. LEVAQUIN [Concomitant]
     Dosage: UNK UNK, QD
     Route: 048
  6. SEREVENT [Concomitant]
     Dosage: UNK UNK, QD
     Route: 045
  7. SPIRIVA [Concomitant]
     Dosage: UNK UNK, QD
     Route: 045
  8. ADVAIR DISKUS 100/50 [Concomitant]
     Dosage: UNK UNK, QD
     Route: 045
  9. PLAVIX [Concomitant]
     Dosage: UNK UNK, QD
     Route: 048
  10. ARANESP [Suspect]
     Indication: ANAEMIA
     Dosage: 300 MUG, Q2WK
     Route: 058
     Dates: start: 20050101, end: 20120508
  11. AMLODIPINE BESYLATE [Concomitant]
     Dosage: UNK UNK, QD
     Route: 048
  12. ASPIRIN [Concomitant]
     Dosage: UNK UNK, QD
     Route: 048
  13. NIFEREX                            /00198301/ [Concomitant]
     Dosage: UNK UNK, QD
     Route: 048
  14. PRAVACHOL [Concomitant]
     Dosage: UNK UNK, QD
     Route: 048
  15. ALBUTEROL [Concomitant]
     Dosage: 2X90 MUG, QID, PRN
     Route: 045
  16. EFFEXOR XR [Concomitant]
     Dosage: UNK UNK, QD
     Route: 048

REACTIONS (3)
  - DRUG INEFFECTIVE [None]
  - CARDIAC FAILURE CONGESTIVE [None]
  - ANAEMIA [None]
